FAERS Safety Report 10039634 (Version 1)
Quarter: 2014Q1

REPORT INFORMATION
  Report Type: Report from Study
  Country: US (occurrence: US)
  Receive Date: 20140326
  Receipt Date: 20140326
  Transmission Date: 20141002
  Serious: Yes (Death)
  Sender: FDA-Public Use
  Company Number: US-JNJFOC-20140218461

PATIENT
  Age: 24 Year
  Sex: Female

DRUGS (6)
  1. TYLENOL [Suspect]
     Route: 065
  2. TYLENOL [Suspect]
     Indication: OVERDOSE
     Route: 065
     Dates: start: 19920724, end: 19920724
  3. APAP [Suspect]
     Route: 065
  4. APAP [Suspect]
     Indication: OVERDOSE
     Route: 065
     Dates: start: 19920724, end: 19920724
  5. DIPHENHYDRAMINE [Suspect]
     Indication: PRODUCT USED FOR UNKNOWN INDICATION
     Route: 065
  6. CODEINE [Suspect]
     Indication: OVERDOSE
     Route: 065
     Dates: start: 19920724

REACTIONS (6)
  - Hepatic necrosis [Fatal]
  - Acute respiratory distress syndrome [Fatal]
  - Metabolic encephalopathy [Fatal]
  - Overdose [Fatal]
  - Pneumonia bacterial [Fatal]
  - Toxicity to various agents [Fatal]
